FAERS Safety Report 10465696 (Version 1)
Quarter: 2014Q3

REPORT INFORMATION
  Report Type: Spontaneous
  Country: US (occurrence: US)
  Receive Date: 20140919
  Receipt Date: 20140919
  Transmission Date: 20150326
  Serious: Yes (Death, Hospitalization, Other)
  Sender: FDA-Public Use
  Company Number: US-B.I. PHARMACEUTICALS,INC./RIDGEFIELD-2014-BI-43934BP

PATIENT
  Age: 73 Year
  Sex: Male

DRUGS (6)
  1. DIGOXIN. [Concomitant]
     Active Substance: DIGOXIN
     Indication: PRODUCT USED FOR UNKNOWN INDICATION
     Dosage: 0.25 MG
     Route: 048
  2. PRADAXA [Suspect]
     Active Substance: DABIGATRAN ETEXILATE MESYLATE
     Indication: ATRIAL FIBRILLATION
     Dosage: 300 MG
     Route: 065
     Dates: start: 20110922, end: 20111114
  3. LISINOPRIL. [Concomitant]
     Active Substance: LISINOPRIL
     Indication: PRODUCT USED FOR UNKNOWN INDICATION
     Dosage: 40 MG
     Route: 048
  4. ASPIRIN. [Suspect]
     Active Substance: ASPIRIN
     Indication: PRODUCT USED FOR UNKNOWN INDICATION
     Dosage: 325 MG
     Route: 065
     Dates: end: 20111114
  5. METFORMIN [Concomitant]
     Active Substance: METFORMIN HYDROCHLORIDE
     Indication: PRODUCT USED FOR UNKNOWN INDICATION
     Dosage: 1000 MG
     Route: 048
  6. METOPROLOL [Concomitant]
     Active Substance: METOPROLOL
     Indication: PRODUCT USED FOR UNKNOWN INDICATION
     Dosage: 25 MG
     Route: 048

REACTIONS (12)
  - Gastrointestinal haemorrhage [Fatal]
  - Renal failure acute [Unknown]
  - Acute respiratory failure [Unknown]
  - Polyp [Recovered/Resolved]
  - Hypovolaemic shock [Unknown]
  - Diverticulum [Unknown]
  - Thrombocytopenia [Unknown]
  - Cardiogenic shock [Unknown]
  - Mediastinal haemorrhage [Unknown]
  - Cardio-respiratory arrest [Recovered/Resolved]
  - Acute myocardial infarction [Unknown]
  - Rectal haemorrhage [Recovered/Resolved]

NARRATIVE: CASE EVENT DATE: 20111111
